FAERS Safety Report 23924864 (Version 1)
Quarter: 2024Q2

REPORT INFORMATION
  Report Type: Spontaneous
  Country: US (occurrence: US)
  Receive Date: 20240531
  Receipt Date: 20240531
  Transmission Date: 20240715
  Serious: No
  Sender: FDA-Public Use
  Company Number: US-PFIZER INC-202400181988

PATIENT
  Age: 77 Year
  Sex: Female

DRUGS (1)
  1. IBRANCE [Suspect]
     Active Substance: PALBOCICLIB
     Dosage: ONCE DAILY ON DAYS 1 THROUGH 21 OF 28 DAY CYCLE
     Dates: start: 20230310

REACTIONS (1)
  - White blood cell count abnormal [Unknown]
